FAERS Safety Report 22135411 (Version 1)
Quarter: 2023Q1

REPORT INFORMATION
  Report Type: Spontaneous
  Country: AU (occurrence: AU)
  Receive Date: 20230324
  Receipt Date: 20230324
  Transmission Date: 20230418
  Serious: Yes (Other)
  Sender: FDA-Public Use
  Company Number: AU-MYLANLABS-2023M1028581

PATIENT
  Age: 41 Year
  Sex: Female

DRUGS (5)
  1. CLOZARIL [Suspect]
     Active Substance: CLOZAPINE
     Indication: Schizophrenia
     Dosage: 300 MILLIGRAM, QD(AT NIGHT)
     Route: 048
     Dates: start: 20230216, end: 20230310
  2. BENZTROPINE [Concomitant]
     Active Substance: BENZTROPINE
     Indication: Muscle contractions involuntary
     Dosage: 1 DOSAGE FORM(WHEN REQUIRED UPTO 20MIN)
     Route: 065
  3. POLYETHYLENE GLYCOL 3350, SODIUM CHLORIDE, SODIUM BICARBONATE AND POTA [Concomitant]
     Active Substance: POLYETHYLENE GLYCOL 3350\POTASSIUM CHLORIDE\SODIUM BICARBONATE\SODIUM CHLORIDE
     Indication: Constipation
     Dosage: UNK(1 TO 2 SACHETS PRN)
     Route: 065
  4. ATROPINE [Concomitant]
     Active Substance: ATROPINE
     Indication: Salivary hypersecretion
     Dosage: UNK(1-2 DROPS UNDER TOUNGE EVERY 4 HOURS)
     Route: 065
  5. SCOPOLAMINE HYDROBROMIDE [Concomitant]
     Active Substance: SCOPOLAMINE HYDROBROMIDE
     Indication: Salivary hypersecretion
     Dosage: 1 DOSAGE FORM, QID
     Route: 065

REACTIONS (3)
  - Myocarditis [Unknown]
  - Influenza like illness [Unknown]
  - C-reactive protein increased [Unknown]

NARRATIVE: CASE EVENT DATE: 20230307
